FAERS Safety Report 8924529 (Version 1)
Quarter: 2012Q4

REPORT INFORMATION
  Report Type: 
  Country: AU (occurrence: AU)
  Receive Date: 20121126
  Receipt Date: 20121126
  Transmission Date: 20130627
  Serious: Yes (Death)
  Sender: FDA-Public Use
  Company Number: AU-PFIZER INC-2012268198

PATIENT
  Sex: Female

DRUGS (10)
  1. DEPO-MEDROL [Suspect]
     Indication: VASCULITIS
     Dosage: 100 mg, 1x/day
     Route: 042
  2. CALTRATE [Concomitant]
     Indication: PHOSPHATE
     Dosage: 600 mg, 3x/day
     Route: 048
     Dates: start: 20121010
  3. ACETYLSALICYLIC ACID [Concomitant]
     Indication: ANTIPLATELET THERAPY
     Dosage: 100 mg, 1x/day
     Route: 048
  4. OSTELIN [Concomitant]
     Indication: VITAMIN SUPPLEMENTATION
     Dosage: 1000 IU, 1x/day
     Route: 048
     Dates: start: 20121010
  5. HEPARIN [Concomitant]
     Indication: DVT PROPHYLAXIS
     Dosage: 5000 IU, 2x/day
     Route: 058
     Dates: start: 20121010, end: 20121102
  6. FRUSEMIDE [Concomitant]
     Indication: DIURESIS
     Dosage: 80 mg, 2x/day
     Route: 048
     Dates: start: 20121021, end: 20121027
  7. NEXIUM [Concomitant]
     Indication: PROPHYLAXIS AGAINST DRUG-INDUCED PEPTIC ULCERS
     Dosage: 40 mg, 1x/day
     Route: 048
     Dates: start: 20121025, end: 20121102
  8. NILSTAT [Concomitant]
     Indication: ORAL CANDIDIASIS
     Dosage: 1 ml, 4x/day
     Route: 048
     Dates: start: 20121025, end: 20121102
  9. BACTRIM DS [Concomitant]
     Indication: PNEUMOCYSTIS CARINII PROPHYLAXIS
     Dosage: 160/800mg, half a tablet  (80/400mg) twice a week
     Route: 048
     Dates: start: 20121026, end: 20121101
  10. PANAMAX [Concomitant]
     Indication: PAIN RELIEF
     Dosage: 1 g, 4x/day
     Route: 048
     Dates: start: 20121019

REACTIONS (4)
  - Pulmonary oedema [Fatal]
  - Acute myocardial infarction [Fatal]
  - Atrial fibrillation [Fatal]
  - Incorrect route of drug administration [Unknown]
